FAERS Safety Report 6412546-5 (Version None)
Quarter: 2009Q4

REPORT INFORMATION
  Report Type: 
  Country: None (occurrence: None)
  Receive Date: 20091023
  Receipt Date: 20091019
  Transmission Date: 20100525
  Serious: Yes (Hospitalization)
  Sender: FDA-Public Use
  Company Number: US-AVENTIS-200919358US

PATIENT
  Sex: Female

DRUGS (16)
  1. LANTUS [Suspect]
     Route: 058
     Dates: start: 20070101
  2. LANTUS [Suspect]
     Route: 058
     Dates: end: 20090901
  3. LANTUS [Suspect]
     Route: 058
     Dates: start: 20090901
  4. NOVOLOG MIX 70/30 [Concomitant]
     Dosage: DOSE: 10 UNITS IN AM AND IF OVER 220 14 UITS PER SLIDING SCALE
  5. ABILIFY [Concomitant]
     Dosage: DOSE: UNK
  6. HYDROXYZINE PAMOATE [Concomitant]
     Dosage: DOSE: UNK
  7. MIRAPEX [Concomitant]
     Dosage: DOSE: UNK
  8. POTASSIUM TABLET [Concomitant]
     Dosage: DOSE: UNK
  9. TRAMADOL HCL [Concomitant]
     Dosage: DOSE: UNK
  10. LASIX [Concomitant]
     Dosage: DOSE: UNK
  11. CYMBALTA [Concomitant]
     Dosage: DOSE: UNK
  12. BUSPAR [Concomitant]
     Dosage: DOSE: UNK
  13. METOPROLOL SUCCINATE [Concomitant]
     Dosage: DOSE: UNK
  14. LYRICA [Concomitant]
     Dosage: DOSE: UNK
  15. CLONAZEPAM [Concomitant]
     Dosage: DOSE: UNK
  16. GABAPENTIN [Concomitant]
     Dosage: DOSE: UNK

REACTIONS (3)
  - BLOOD GLUCOSE INCREASED [None]
  - DELIRIUM [None]
  - HYPERGLYCAEMIA [None]
